FAERS Safety Report 9965808 (Version 1)
Quarter: 2014Q1

REPORT INFORMATION
  Report Type: Report from Study
  Country: US (occurrence: US)
  Receive Date: 20140305
  Receipt Date: 20140305
  Transmission Date: 20141002
  Serious: No
  Sender: FDA-Public Use
  Company Number: US-ABBVIE-13P-163-1123478-00

PATIENT
  Age: 51 Year
  Sex: Female

DRUGS (13)
  1. HUMIRA [Suspect]
     Indication: RHEUMATOID ARTHRITIS
     Dates: start: 201305
  2. CYMBALTA [Concomitant]
     Indication: PAIN
  3. MOBIC [Concomitant]
     Indication: ARTHRITIS
  4. ALBUTEROL [Concomitant]
     Indication: ASTHMA
     Dosage: INHALER
  5. ADVAIR [Concomitant]
     Indication: ASTHMA
     Dosage: INHALER
  6. NEURONTIN [Concomitant]
     Indication: ARTHRITIS
  7. NEXIUM [Concomitant]
     Indication: GASTROOESOPHAGEAL REFLUX DISEASE
  8. HYDROCODONE [Concomitant]
     Indication: PAIN
  9. TRAZADONE [Concomitant]
     Indication: INSOMNIA
  10. K PLUS [Concomitant]
     Indication: MINERAL SUPPLEMENTATION
  11. ARAVA [Concomitant]
     Indication: RHEUMATOID ARTHRITIS
  12. LISINOPRIL + HIDROCLOROTIAZIDA [Concomitant]
     Indication: HYPERTENSION
     Dosage: 20/25 DAILY
  13. LISINOPRIL + HIDROCLOROTIAZIDA [Concomitant]
     Indication: FLUID RETENTION

REACTIONS (3)
  - Pain [Not Recovered/Not Resolved]
  - Injection site haemorrhage [Unknown]
  - Local swelling [Unknown]
